FAERS Safety Report 12739554 (Version 1)
Quarter: 2016Q3

REPORT INFORMATION
  Report Type: Other
  Country: SI (occurrence: SI)
  Receive Date: 20160913
  Receipt Date: 20160913
  Transmission Date: 20161109
  Serious: Yes (Hospitalization)
  Sender: FDA-Public Use
  Company Number: SI-B. BRAUN MEDICAL INC.-1057286

PATIENT
  Age: 38 Year
  Sex: Male

DRUGS (2)
  1. HEPARIN SODIUM AND DEXTROSE [Suspect]
     Active Substance: HEPARIN SODIUM
     Indication: EXTRACORPOREAL MEMBRANE OXYGENATION
  2. BIVALIRUDIN. [Concomitant]
     Active Substance: BIVALIRUDIN

REACTIONS (4)
  - Sepsis [None]
  - Procedural complication [None]
  - Heparin-induced thrombocytopenia [None]
  - Renal failure [None]
